FAERS Safety Report 25115447 (Version 2)
Quarter: 2025Q1

REPORT INFORMATION
  Report Type: Report from Study
  Country: US (occurrence: US)
  Receive Date: 20250324
  Receipt Date: 20250327
  Transmission Date: 20250409
  Serious: Yes (Other)
  Sender: PFIZER
  Company Number: US-PFIZER INC-202500063117

PATIENT
  Age: 68 Year
  Sex: Female

DRUGS (13)
  1. BRAFTOVI [Suspect]
     Active Substance: ENCORAFENIB
     Indication: Lung carcinoma cell type unspecified stage 0
     Dosage: 450 MG, 1X/DAY
     Route: 048
     Dates: start: 20250307
  2. BRAFTOVI [Suspect]
     Active Substance: ENCORAFENIB
     Dosage: FOUR 75MG CAPSULES
     Dates: start: 20250318
  3. MEKTOVI [Suspect]
     Active Substance: BINIMETINIB
     Indication: Lung carcinoma cell type unspecified stage 0
     Dosage: THREE 15MG MEKTOVI TABLETS
     Dates: start: 20250307
  4. AMLODIPINE [Concomitant]
     Active Substance: AMLODIPINE BESYLATE
  5. ATORVASTATIN [Concomitant]
     Active Substance: ATORVASTATIN
  6. CHOLESTYRAMINE [Concomitant]
     Active Substance: CHOLESTYRAMINE
  7. LEVOTHYROXINE [Concomitant]
     Active Substance: LEVOTHYROXINE
  8. LOPERAMIDE [Concomitant]
     Active Substance: LOPERAMIDE
  9. LORAZEPAM [Concomitant]
     Active Substance: LORAZEPAM
  10. LOSARTAN [Concomitant]
     Active Substance: LOSARTAN
  11. METFORMIN [Concomitant]
     Active Substance: METFORMIN HYDROCHLORIDE
  12. ZOFRAN [Concomitant]
     Active Substance: ONDANSETRON HYDROCHLORIDE
  13. PEPCID [Concomitant]
     Active Substance: FAMOTIDINE

REACTIONS (6)
  - Retinal oedema [Not Recovered/Not Resolved]
  - Vision blurred [Not Recovered/Not Resolved]
  - Abdominal discomfort [Not Recovered/Not Resolved]
  - Gastrooesophageal reflux disease [Not Recovered/Not Resolved]
  - Insomnia [Not Recovered/Not Resolved]
  - Diarrhoea [Not Recovered/Not Resolved]

NARRATIVE: CASE EVENT DATE: 20250308
